FAERS Safety Report 10556920 (Version 1)
Quarter: 2014Q4

REPORT INFORMATION
  Report Type: Spontaneous
  Country: US (occurrence: None)
  Receive Date: 20141029
  Receipt Date: 20141029
  Transmission Date: 20150529
  Serious: Yes (Life-Threatening)
  Sender: FDA-Public Use
  Company Number: 20140671

PATIENT
  Age: 16 Year
  Sex: Male

DRUGS (1)
  1. FOMEPIZOLE. [Suspect]
     Active Substance: FOMEPIZOLE
     Indication: TOXICITY TO VARIOUS AGENTS
     Dosage: MINUTES, OVER 30
     Route: 042

REACTIONS (2)
  - Anaphylactic reaction [None]
  - Haemodialysis [None]
